FAERS Safety Report 7956038-0 (Version None)
Quarter: 2011Q4

REPORT INFORMATION
  Report Type: 
  Country: None (occurrence: None)
  Receive Date: 20111205
  Receipt Date: 20111130
  Transmission Date: 20120403
  Serious: No
  Sender: FDA-Public Use
  Company Number: US-PFIZER INC-2011292674

PATIENT
  Sex: Female
  Weight: 55.329 kg

DRUGS (1)
  1. EFFEXOR XR [Suspect]
     Indication: ANXIETY
     Dosage: 75 MG DAILY
     Route: 048
     Dates: start: 20050101, end: 20110701

REACTIONS (6)
  - ARTHRALGIA [None]
  - PAIN IN EXTREMITY [None]
  - PAIN [None]
  - BACK PAIN [None]
  - IRRITABILITY [None]
  - BONE PAIN [None]
